FAERS Safety Report 8523926-6 (Version None)
Quarter: 2012Q3

REPORT INFORMATION
  Report Type: 
  Country: None (occurrence: None)
  Receive Date: 20120720
  Receipt Date: 20120710
  Transmission Date: 20120928
  Serious: Yes (Other)
  Sender: FDA-Public Use
  Company Number: US-BRISTOL-MYERS SQUIBB COMPANY-16761405

PATIENT
  Age: 77 Year
  Sex: Male

DRUGS (14)
  1. NOVOLOG [Concomitant]
     Indication: DIABETES MELLITUS
     Dosage: NOVOLOG 70/30,20 U
     Route: 058
  2. COREG [Concomitant]
     Indication: HYPERTENSION
     Route: 048
  3. AMLODIPINE [Concomitant]
     Indication: HYPERTENSION
     Route: 048
  4. LASIX [Concomitant]
     Indication: OEDEMA
     Route: 048
  5. MULTI-VITAMIN [Concomitant]
     Route: 048
  6. ASPIRIN [Concomitant]
     Indication: THROMBOSIS
     Route: 048
  7. GLIPIZIDE [Concomitant]
     Indication: DIABETES MELLITUS
     Route: 048
  8. SIMVASTATIN [Concomitant]
     Indication: BLOOD CHOLESTEROL INCREASED
     Route: 048
  9. ZANTAC [Concomitant]
     Indication: DYSPEPSIA
     Dosage: PRN
     Route: 048
  10. TYLENOL [Concomitant]
     Indication: PAIN
     Dosage: Q4-6 HPRN TYLENOL COD
     Route: 048
  11. COUMADIN [Suspect]
     Indication: HEART VALVE REPLACEMENT
     Dates: start: 19970101
  12. LUPRON [Concomitant]
     Indication: PROSTATE CANCER
     Dosage: LUPRON INJ
  13. VITAMIN E [Concomitant]
     Route: 048
  14. ENOXAPARIN [Suspect]
     Indication: ANTICOAGULANT THERAPY
     Dates: start: 20111201

REACTIONS (2)
  - PROSTATE CANCER [None]
  - THROMBOSIS [None]
